FAERS Safety Report 5232282-0 (Version None)
Quarter: 2007Q1

REPORT INFORMATION
  Report Type: 
  Country: None (occurrence: None)
  Receive Date: 20070205
  Receipt Date: 20070123
  Transmission Date: 20070707
  Serious: Yes (Other)
  Sender: FDA-Public Use
  Company Number: 430002L07ITA

PATIENT
  Age: 37 Year
  Sex: Female

DRUGS (3)
  1. MITOXANTRONE [Suspect]
     Indication: MULTIPLE SCLEROSIS
     Dates: start: 20031201, end: 20050301
  2. CORTICOSTEROIDS [Concomitant]
  3. INTERFERON BETA [Concomitant]

REACTIONS (6)
  - ACUTE PROMYELOCYTIC LEUKAEMIA [None]
  - ANAEMIA [None]
  - HEPATOMEGALY [None]
  - LEUKOPENIA [None]
  - PALLOR [None]
  - THROMBOCYTOPENIA [None]
